FAERS Safety Report 4558670-3 (Version None)
Quarter: 2005Q1

REPORT INFORMATION
  Report Type: 
  Country: None (occurrence: None)
  Receive Date: 20050121
  Receipt Date: 20050121
  Transmission Date: 20050727
  Serious: Yes (Other)
  Sender: FDA-Public Use
  Company Number: None

PATIENT

DRUGS (2)
  1. LIPITOR [Suspect]
  2. NORVASC [Suspect]

REACTIONS (1)
  - MEDICATION ERROR [None]
